FAERS Safety Report 25026080 (Version 1)
Quarter: 2025Q1

REPORT INFORMATION
  Report Type: Spontaneous
  Country: US (occurrence: US)
  Receive Date: 20250301
  Receipt Date: 20250301
  Transmission Date: 20250408
  Serious: No
  Sender: ROCHE
  Company Number: US-ROCHE-10000215258

PATIENT
  Age: 62 Year
  Sex: Male

DRUGS (1)
  1. XOLAIR [Suspect]
     Active Substance: OMALIZUMAB
     Indication: Urticaria
     Dosage: STRENTH: 300 MG/2ML
     Route: 058
     Dates: start: 202412

REACTIONS (2)
  - Drug ineffective [Unknown]
  - Urticaria [Unknown]

NARRATIVE: CASE EVENT DATE: 20250101
